FAERS Safety Report 5165369-1 (Version None)
Quarter: 2006Q4

REPORT INFORMATION
  Report Type: 
  Country: None (occurrence: None)
  Receive Date: 20061206
  Receipt Date: 20061027
  Transmission Date: 20070319
  Serious: Yes (Life-Threatening)
  Sender: FDA-Public Use
  Company Number: PHBS2006FI16702

PATIENT
  Age: 31 Year
  Sex: Male

DRUGS (6)
  1. LEPONEX [Suspect]
     Indication: PSYCHOTIC DISORDER
     Dosage: 700 MG/DAY
     Dates: start: 20061013
  2. LYRICA [Suspect]
     Indication: ANXIETY
     Dosage: 350 MG/DAY
     Dates: start: 20060906
  3. CYSTRIN /FIN/ [Suspect]
     Indication: URINARY INCONTINENCE
     Dosage: 10 MG/DAY
     Dates: start: 20060531
  4. DEPAKENE [Concomitant]
     Indication: MOOD ALTERED
     Dosage: 1500 MG/DAY
     Dates: start: 20060220
  5. OPAMOX [Concomitant]
     Dosage: 45 MG/DAY
     Dates: start: 20060222
  6. ANTABUSE [Concomitant]
     Indication: ALCOHOL DETOXIFICATION
     Dosage: 200 MG/DAY
     Dates: start: 20061011

REACTIONS (5)
  - ABDOMINAL PAIN UPPER [None]
  - C-REACTIVE PROTEIN INCREASED [None]
  - COLECTOMY [None]
  - INTESTINAL STOMA [None]
  - MEGACOLON [None]
